FAERS Safety Report 7653769-7 (Version None)
Quarter: 2011Q3

REPORT INFORMATION
  Report Type: 
  Country: None (occurrence: None)
  Receive Date: 20110803
  Receipt Date: 20110720
  Transmission Date: 20111222
  Serious: Yes (Death)
  Sender: FDA-Public Use
  Company Number: JP-GLAXOSMITHKLINE-B0722010A

PATIENT
  Sex: Female

DRUGS (15)
  1. PROMACTA [Suspect]
     Indication: IDIOPATHIC THROMBOCYTOPENIC PURPURA
     Dosage: 12.5MG PER DAY
     Route: 048
     Dates: start: 20110402
  2. PURSENNID [Concomitant]
     Dosage: 24MG PER DAY
     Route: 048
  3. ALENDRONATE SODIUM [Concomitant]
     Route: 048
  4. INDERAL [Concomitant]
     Dosage: 10MG PER DAY
     Route: 048
  5. PREDNISOLONE [Concomitant]
     Dosage: 3MG PER DAY
     Route: 048
  6. PREDNISOLONE [Concomitant]
     Dosage: 1MG PER DAY
     Route: 048
  7. LANSOPRAZOLE [Concomitant]
     Dosage: 15MG PER DAY
     Route: 048
  8. PROMAC [Concomitant]
     Dosage: 150MG PER DAY
     Route: 048
     Dates: start: 20110423
  9. ALESION [Concomitant]
     Dosage: 20MG PER DAY
     Route: 048
     Dates: start: 20110424
  10. SUNRYTHM [Concomitant]
     Dosage: 50MG PER DAY
     Route: 048
  11. MAGMITT [Concomitant]
     Dosage: 1320MG PER DAY
     Route: 048
     Dates: start: 20110514
  12. PREDNISOLONE [Concomitant]
     Dosage: 2MG PER DAY
     Route: 048
  13. CINAL [Concomitant]
     Dosage: 4G PER DAY
     Route: 048
  14. ASPARA-CA [Concomitant]
     Dosage: 400MG PER DAY
     Route: 048
  15. CEPHARANTHINE [Concomitant]
     Indication: IDIOPATHIC THROMBOCYTOPENIC PURPURA
     Dosage: 60MG PER DAY
     Route: 048
     Dates: end: 20110423

REACTIONS (1)
  - SUDDEN DEATH [None]
